FAERS Safety Report 5726914-8 (Version None)
Quarter: 2008Q2

REPORT INFORMATION
  Report Type: 
  Country: None (occurrence: None)
  Receive Date: 20080501
  Receipt Date: 20071217
  Transmission Date: 20081010
  Serious: Yes (Other)
  Sender: FDA-Public Use
  Company Number: PHEH2007US15238

PATIENT
  Age: 58 Year
  Sex: Male
  Weight: 124.7 kg

DRUGS (1)
  1. DIOVAN HCT [Suspect]
     Dosage: 12.5 OF HCT, ORAL
     Route: 048
     Dates: start: 20070701, end: 20070901

REACTIONS (1)
  - ANGIOEDEMA [None]
